FAERS Safety Report 9607322 (Version 1)
Quarter: 2013Q4

REPORT INFORMATION
  Report Type: Spontaneous
  Country: US (occurrence: None)
  Receive Date: 20131007
  Receipt Date: 20131007
  Transmission Date: 20140711
  Serious: No
  Sender: FDA-Public Use
  Company Number: None

PATIENT
  Age: 70 Year
  Sex: Female
  Weight: 76.2 kg

DRUGS (11)
  1. OMEPRAZOLE [Suspect]
     Indication: GASTROOESOPHAGEAL REFLUX DISEASE
     Dosage: 1 TABLET ONCE A DAY
     Route: 048
     Dates: start: 201011, end: 20130815
  2. HYDROCORTISONE [Concomitant]
  3. LASIX [Concomitant]
  4. CLONAZEPAM [Concomitant]
  5. ARMOUR THYROID [Concomitant]
  6. BIODENTICAL HORMONES TOPICALLY [Concomitant]
  7. COQ10 [Concomitant]
  8. FISH OIL [Concomitant]
  9. ELDERBERRY [Concomitant]
  10. VIT C [Concomitant]
  11. VIT D [Concomitant]

REACTIONS (6)
  - Back pain [None]
  - Abdominal pain upper [None]
  - Abdominal pain lower [None]
  - Abdominal distension [None]
  - Cough [None]
  - Drug effect decreased [None]
